FAERS Safety Report 6972016-2 (Version None)
Quarter: 2010Q3

REPORT INFORMATION
  Report Type: 
  Country: None (occurrence: None)
  Receive Date: 20100908
  Receipt Date: 20100908
  Transmission Date: 20110219
  Serious: No
  Sender: FDA-Public Use
  Company Number: None

PATIENT
  Age: 67 Year
  Sex: Female
  Weight: 99.7913 kg

DRUGS (1)
  1. TRIMETHOPRIM SULFATE AND POLYMYXIN B SULFATE [Suspect]
     Dosage: 2 DROPS 4X DAILY
     Route: 047
     Dates: start: 20100819

REACTIONS (2)
  - EYE IRRITATION [None]
  - OCULAR HYPERAEMIA [None]
